FAERS Safety Report 13329443 (Version 2)
Quarter: 2017Q2

REPORT INFORMATION
  Report Type: Spontaneous
  Country: JP (occurrence: JP)
  Receive Date: 20170313
  Receipt Date: 20170407
  Transmission Date: 20170830
  Serious: Yes (Other)
  Sender: FDA-Public Use
  Company Number: JP-JNJFOC-20170310631

PATIENT
  Age: 37 Year
  Sex: Female

DRUGS (4)
  1. ETHINYLESTRADIOL W/NORETHINDRONE [Suspect]
     Active Substance: ETHINYL ESTRADIOL\NORETHINDRONE
     Indication: DYSMENORRHOEA
     Route: 048
     Dates: end: 201212
  2. CICLOSPORIN [Concomitant]
     Active Substance: CYCLOSPORINE
     Indication: PSORIATIC ARTHROPATHY
     Route: 065
  3. MIZORIBINE [Concomitant]
     Active Substance: MIZORIBINE
     Indication: PSORIATIC ARTHROPATHY
     Route: 065
  4. ORTHO M-21 [Suspect]
     Active Substance: ETHINYL ESTRADIOL\NORETHINDRONE
     Indication: DYSMENORRHOEA
     Route: 048
     Dates: end: 201212

REACTIONS (1)
  - Psoriatic arthropathy [Recovering/Resolving]
